FAERS Safety Report 23063588 (Version 2)
Quarter: 2023Q4

REPORT INFORMATION
  Report Type: Spontaneous
  Country: JP (occurrence: JP)
  Receive Date: 20231013
  Receipt Date: 20231207
  Transmission Date: 20240110
  Serious: Yes (Other)
  Sender: FDA-Public Use
  Company Number: JP-MSD-2310JPN000595JAA

PATIENT
  Age: 59 Year
  Sex: Male

DRUGS (3)
  1. KEYTRUDA [Suspect]
     Active Substance: PEMBROLIZUMAB
     Indication: Renal cell carcinoma
     Dosage: 200 MILLIGRAM
     Route: 065
  2. LENVATINIB MESYLATE [Suspect]
     Active Substance: LENVATINIB MESYLATE
     Indication: Renal cell carcinoma
     Dosage: 20 MILLIGRAM, QD
     Route: 065
  3. LENVATINIB MESYLATE [Suspect]
     Active Substance: LENVATINIB MESYLATE
     Dosage: 14 MILLIGRAM, QD
     Route: 065

REACTIONS (9)
  - Cerebral haemorrhage [Unknown]
  - Renal impairment [Unknown]
  - Immune-mediated nephritis [Unknown]
  - Hypothyroidism [Unknown]
  - Immune-mediated hepatitis [Unknown]
  - Pyrexia [Unknown]
  - Rash [Unknown]
  - Hepatic function abnormal [Unknown]
  - Hypertension [Unknown]
